FAERS Safety Report 19860380 (Version 1)
Quarter: 2021Q3

REPORT INFORMATION
  Report Type: Spontaneous
  Country: FR (occurrence: FR)
  Receive Date: 20210921
  Receipt Date: 20210921
  Transmission Date: 20211014
  Serious: Yes (Other)
  Sender: FDA-Public Use
  Company Number: FR-AMGEN-FRASP2021143041

PATIENT
  Age: 74 Year
  Sex: Female
  Weight: 52 kg

DRUGS (15)
  1. PROLIA [Suspect]
     Active Substance: DENOSUMAB
     Indication: OSTEOPOROSIS
     Route: 065
  2. CHOLECALCIFEROL [Concomitant]
     Active Substance: CHOLECALCIFEROL
     Indication: PRODUCT USED FOR UNKNOWN INDICATION
     Dosage: 100000 INTERNATIONAL UNIT (CHOLECALCIFEROL 100,000 IU/2 ML,1 AMPOULE PER MONTH DURING 3 MONTHS)
     Route: 048
     Dates: start: 20170313
  3. ALPRAZOLAM. [Concomitant]
     Active Substance: ALPRAZOLAM
     Dosage: 1 DOSAGE FORM, QD (1 TAB PER DAY DURING 1 MONTH)
     Route: 048
     Dates: start: 20170704
  4. LEVOTHYROX [Suspect]
     Active Substance: LEVOTHYROXINE
     Dosage: 0.5 DOSAGE FORM (1/2 TAB PER DAY BEFORE BREAKFAST DURING 3 MONTHS)
     Route: 048
     Dates: start: 20170704
  5. LEVOTHYROX [Suspect]
     Active Substance: LEVOTHYROXINE
     Dosage: 0.5 DOSAGE FORM, QD (1/2 TAB PER DAY BEFORE BREAKFAST DURING 3 MONTHS)
     Route: 048
     Dates: start: 20160801
  6. DIPROSONE [BETAMETHASONE SODIUM PHOSPHATE] [Concomitant]
     Indication: PRODUCT USED FOR UNKNOWN INDICATION
     Dosage: 1 TUBE
     Route: 061
     Dates: start: 20170704
  7. LEVOTHYROX [Suspect]
     Active Substance: LEVOTHYROXINE
     Indication: HYPOTHYROIDISM
     Dosage: 1 DOSAGE FORM, QD (1 TAB PER DAY BEFORE BREAKFAST DURING 3 MONTHS)
     Route: 048
     Dates: start: 20170313
  8. LEVOTHYROX [Suspect]
     Active Substance: LEVOTHYROXINE
     Dosage: 1 DOSAGE FORM, QD (1 TAB PER DAY BEFORE BREAKFAST DURING 3 MONTHS)
     Route: 048
     Dates: start: 20170908
  9. LEVOTHYROX [Suspect]
     Active Substance: LEVOTHYROXINE
     Dosage: 1 DOSAGE FORM, QD (1 TAB PER DAY DURING 3 MONTHS)
     Route: 048
     Dates: start: 20170313
  10. PARACETAMOL [Concomitant]
     Active Substance: ACETAMINOPHEN
     Indication: PRODUCT USED FOR UNKNOWN INDICATION
     Dosage: 3 DOSAGE FORM, QD (3 TABS PER DAY DURING 3 MONTHS)
     Route: 048
     Dates: start: 20170704
  11. LEVOTHYROX [Suspect]
     Active Substance: LEVOTHYROXINE
     Dosage: 1 DOSAGE FORM, QD (1 TAB PER DAY DURING 3 MONTHS)
     Route: 048
     Dates: start: 20170908
  12. LEVOTHYROX [Suspect]
     Active Substance: LEVOTHYROXINE
     Dosage: 1 DOSAGE FORM, QD (1 TAB PER DAY DURING 3 MONTHS)
     Route: 048
     Dates: start: 20160801
  13. LEVOTHYROX [Suspect]
     Active Substance: LEVOTHYROXINE
     Dosage: 1 DOSAGE FORM, QD (1 TAB PER DAY DURING 3 MONTHS)
     Route: 048
     Dates: start: 20170704
  14. ALPRAZOLAM. [Concomitant]
     Active Substance: ALPRAZOLAM
     Indication: PRODUCT USED FOR UNKNOWN INDICATION
     Dosage: 1 DOSAGE FORM, QD (1 TAB PER DAY DURING 1 MONTH)
     Route: 048
     Dates: start: 20160801
  15. PARACETAMOL [Concomitant]
     Active Substance: ACETAMINOPHEN
     Dosage: 3 DOSAGE FORM, QD (3 TABS PER DAY DURING 3 MONTHS)
     Route: 048
     Dates: start: 20160801

REACTIONS (14)
  - Irritability [Not Recovered/Not Resolved]
  - Fatigue [Unknown]
  - Balance disorder [Unknown]
  - Peripheral venous disease [Unknown]
  - Muscular weakness [Unknown]
  - Hyponatraemia [Unknown]
  - Anxiety [Unknown]
  - Presyncope [Unknown]
  - Carotid arteriosclerosis [Unknown]
  - Insomnia [Unknown]
  - Hyperaldosteronism [Unknown]
  - Dizziness [Unknown]
  - Emotional distress [Not Recovered/Not Resolved]
  - Malaise [Not Recovered/Not Resolved]

NARRATIVE: CASE EVENT DATE: 201703
